FAERS Safety Report 23830472 (Version 1)
Quarter: 2024Q2

REPORT INFORMATION
  Report Type: Spontaneous
  Country: ET (occurrence: ET)
  Receive Date: 20240508
  Receipt Date: 20240508
  Transmission Date: 20240716
  Serious: Yes (Other)
  Sender: FDA-Public Use
  Company Number: ET-002147023-NVSC2024ET096523

PATIENT
  Sex: Female

DRUGS (1)
  1. GLIVEC [Suspect]
     Active Substance: IMATINIB MESYLATE
     Indication: Chronic myeloid leukaemia
     Dosage: 400 MG (4 X 100MG)
     Route: 065

REACTIONS (4)
  - Cytopenia [Unknown]
  - Myelofibrosis [Unknown]
  - Philadelphia chromosome test [Unknown]
  - Therapy non-responder [Unknown]
